FAERS Safety Report 12299547 (Version 1)
Quarter: 2016Q2

REPORT INFORMATION
  Report Type: Spontaneous
  Country: US (occurrence: None)
  Receive Date: 20160422
  Receipt Date: 20160422
  Transmission Date: 20160815
  Serious: Yes (Hospitalization)
  Sender: FDA-Public Use
  Company Number: None

PATIENT
  Age: 55 Year
  Sex: Male
  Weight: 91.17 kg

DRUGS (1)
  1. TEMOZOLOMIDE. [Suspect]
     Active Substance: TEMOZOLOMIDE
     Dates: end: 20150326

REACTIONS (10)
  - Nausea [None]
  - Haemorrhage [None]
  - Headache [None]
  - Vomiting [None]
  - Diplopia [None]
  - Pain [None]
  - Vision blurred [None]
  - Fatigue [None]
  - Hemiparesis [None]
  - Dysphagia [None]

NARRATIVE: CASE EVENT DATE: 20160326
